FAERS Safety Report 5126837-1 (Version None)
Quarter: 2006Q4

REPORT INFORMATION
  Report Type: 
  Country: None (occurrence: None)
  Receive Date: 20061011
  Receipt Date: 20061011
  Transmission Date: 20070319
  Serious: Yes (Hospitalization)
  Sender: FDA-Public Use
  Company Number: None

PATIENT
  Age: 47 Year
  Sex: Male
  Weight: 65 kg

DRUGS (3)
  1. PIPERACILLIN AND TAZOBACTAM [Suspect]
     Indication: OSTEOMYELITIS
  2. CEFTAZIDIME [Suspect]
     Indication: OSTEOMYELITIS
     Dosage: (DURATION:  3 DOSES)
  3. IMIPENEM [Suspect]
     Indication: OSTEOMYELITIS

REACTIONS (1)
  - WHITE BLOOD CELL COUNT DECREASED [None]
